FAERS Safety Report 4681363-9 (Version None)
Quarter: 2005Q2

REPORT INFORMATION
  Report Type: 
  Country: None (occurrence: None)
  Receive Date: 20050603
  Receipt Date: 20050509
  Transmission Date: 20051028
  Serious: Yes (Hospitalization)
  Sender: FDA-Public Use
  Company Number: GBWYE651909MAY05

PATIENT
  Sex: Female
  Weight: 82.63 kg

DRUGS (9)
  1. ENBREL [Suspect]
     Indication: RHEUMATOID ARTHRITIS
     Dosage: 25MG (FREQUENCY UNKNOWN)
     Route: 058
     Dates: start: 20041001, end: 20050403
  2. METHOTREXATE [Suspect]
     Indication: RHEUMATOID ARTHRITIS
     Route: 058
  3. ANTIHYPERTENSIVES [Concomitant]
  4. ANTIDEPRESSANTS [Concomitant]
  5. PREDNISOLONE [Concomitant]
     Route: 048
     Dates: start: 20041101
  6. PREDNISOLONE [Concomitant]
     Route: 065
     Dates: start: 20041101
  7. IBUPROFEN [Concomitant]
     Dates: start: 20040127, end: 20050505
  8. CITALOPRAM [Concomitant]
     Dates: start: 20040701, end: 20050517
  9. FOLIC ACID [Concomitant]
     Dates: start: 20041001, end: 20050503

REACTIONS (5)
  - BLISTER [None]
  - HEPATITIS [None]
  - LIVER FUNCTION TEST ABNORMAL [None]
  - URTICARIA [None]
  - VASCULITIC RASH [None]
